FAERS Safety Report 8011250-X (Version None)
Quarter: 2011Q4

REPORT INFORMATION
  Report Type: 
  Country: None (occurrence: None)
  Receive Date: 20111227
  Receipt Date: 20111227
  Transmission Date: 20120403
  Serious: No
  Sender: FDA-Public Use
  Company Number: None

PATIENT
  Age: 50 Year
  Sex: Male
  Weight: 104.32 kg

DRUGS (1)
  1. PROPECIA [Suspect]
     Dosage: SAME AS ABOVE

REACTIONS (1)
  - ERECTILE DYSFUNCTION [None]
